FAERS Safety Report 6837185-3 (Version None)
Quarter: 2010Q3

REPORT INFORMATION
  Report Type: 
  Country: None (occurrence: None)
  Receive Date: 20100707
  Receipt Date: 20100628
  Transmission Date: 20110219
  Serious: Yes (Death, Other)
  Sender: FDA-Public Use
  Company Number: 2010US002540

PATIENT
  Age: 53 Year
  Sex: Male

DRUGS (6)
  1. PROGRAF [Suspect]
     Indication: PRODUCT USED FOR UNKNOWN INDICATION
     Dosage: 4 MG, /D,
     Dates: start: 20080104
  2. MYCOPHENOLATE MOFETIL [Concomitant]
  3. PREDNISOLONE [Concomitant]
  4. LOVASTATIN [Concomitant]
  5. NIFEDIPINO (NIFEDIPINE) [Concomitant]
  6. OMEPRAZOLE [Concomitant]

REACTIONS (1)
  - PNEUMONIA [None]
